FAERS Safety Report 9164180 (Version 1)
Quarter: 2013Q1

REPORT INFORMATION
  Report Type: Spontaneous
  Country: US (occurrence: None)
  Receive Date: 20130226
  Receipt Date: 20130226
  Transmission Date: 20140127
  Serious: Yes (Other)
  Sender: FDA-Public Use
  Company Number: AUR-APL-2013-01613

PATIENT
  Age: 56 Year
  Sex: Male
  Weight: 66.21 kg

DRUGS (4)
  1. SERTRALINE (SERTRALINE) (SERTRALINE) [Suspect]
     Indication: PRODUCT USED FOR UNKNOWN INDICATION
     Dosage: 1 D
  2. LEVOTHYROXINE SODIUM [Suspect]
  3. TRAMADOL HCL [Suspect]
     Dosage: 1 DOSAGE FORMS, AS REQUIRED
  4. BACLOFEN (BACLOFEN) (BACLOFEN) [Suspect]
     Dosage: 10 MG, 3 IN 1 D

REACTIONS (6)
  - Fatigue [None]
  - Fall [None]
  - Joint crepitation [None]
  - Activities of daily living impaired [None]
  - Intervertebral disc disorder [None]
  - Hemiparesis [None]
